FAERS Safety Report 18263779 (Version 1)
Quarter: 2020Q3

REPORT INFORMATION
  Report Type: Report from Study
  Country: CA (occurrence: CA)
  Receive Date: 20200914
  Receipt Date: 20200914
  Transmission Date: 20201103
  Serious: Yes (Hospitalization)
  Sender: FDA-Public Use
  Company Number: CA-JNJFOC-20200132552

PATIENT
  Age: 17 Year
  Sex: Female
  Weight: 67 kg

DRUGS (2)
  1. REMICADE [Suspect]
     Active Substance: INFLIXIMAB
     Indication: CROHN^S DISEASE
     Dosage: TOP?UP DOSE 400 MG AND CONTINUE WITH 700 MG WEEK 2?6
     Route: 042
     Dates: start: 20200111
  2. REMICADE [Suspect]
     Active Substance: INFLIXIMAB
     Dosage: TOP?UP DOSE 400 MG AND CONTINUE WITH 700 MG WEEK 2?6
     Route: 042
     Dates: start: 20200116

REACTIONS (3)
  - Product use issue [Unknown]
  - Crohn^s disease [Unknown]
  - Off label use [Unknown]

NARRATIVE: CASE EVENT DATE: 20200111
